FAERS Safety Report 14072323 (Version 1)
Quarter: 2017Q4

REPORT INFORMATION
  Report Type: Spontaneous
  Country: CH (occurrence: CH)
  Receive Date: 20171011
  Receipt Date: 20171011
  Transmission Date: 20180321
  Serious: Yes (Hospitalization)
  Sender: FDA-Public Use
  Company Number: CH-009507513-1710CHE000888

PATIENT
  Age: 84 Year
  Sex: Female
  Weight: 84 kg

DRUGS (9)
  1. INVANZ [Suspect]
     Active Substance: ERTAPENEM SODIUM
     Dosage: 500 MG, QD
     Route: 041
     Dates: start: 20170906, end: 20170918
  2. CONCOR [Concomitant]
     Active Substance: BISOPROLOL FUMARATE
     Dosage: 2.5 MG, QD
     Route: 048
  3. ASPIRIN CARDIO [Concomitant]
     Active Substance: ASPIRIN
     Dosage: 100 MG, QD
     Route: 048
  4. AMLODIPINA MEPHA [Concomitant]
     Active Substance: AMLODIPINE BESYLATE
     Dosage: 10 MG, QD
     Route: 048
  5. ATORVASTATIN [Concomitant]
     Active Substance: ATORVASTATIN
     Dosage: 20 MG, QD
     Route: 048
  6. TORASEMID SANDOZ [Concomitant]
     Active Substance: TORSEMIDE
     Dosage: 200 MG, QD
     Route: 048
  7. METOLAZONE. [Concomitant]
     Active Substance: METOLAZONE
     Dosage: 5 MG, QD
     Route: 048
  8. NEO-MERCAZOLE [Concomitant]
     Active Substance: CARBIMAZOLE
     Dosage: 5 MG, BID
     Route: 048
  9. TARGIN [Concomitant]
     Active Substance: NALOXONE HYDROCHLORIDE\OXYCODONE HYDROCHLORIDE
     Dosage: 5/2.5 MG (1 DF), BID
     Route: 048

REACTIONS (6)
  - Agitation [Recovered/Resolved]
  - Hallucination [Recovered/Resolved]
  - Delirium [Recovered/Resolved]
  - Disorientation [Recovered/Resolved]
  - Confusional state [Recovered/Resolved]
  - Somnolence [Recovered/Resolved]

NARRATIVE: CASE EVENT DATE: 201709
